FAERS Safety Report 18309032 (Version 6)
Quarter: 2020Q4

REPORT INFORMATION
  Report Type: Spontaneous
  Country: JP (occurrence: JP)
  Receive Date: 20200924
  Receipt Date: 20201125
  Transmission Date: 20210113
  Serious: Yes (Hospitalization, Other)
  Sender: FDA-Public Use
  Company Number: JP-JNJFOC-20200931157

PATIENT
  Age: 72 Year
  Sex: Male

DRUGS (1)
  1. ERLEADA [Suspect]
     Active Substance: APALUTAMIDE
     Indication: PROSTATE CANCER
     Route: 048
     Dates: start: 20200807, end: 20200903

REACTIONS (6)
  - Pneumonia bacterial [Recovered/Resolved]
  - Lip oedema [Recovered/Resolved]
  - Swollen tongue [Recovered/Resolved]
  - Erythema multiforme [Recovered/Resolved]
  - Oropharyngeal discomfort [Recovered/Resolved]
  - Dysphagia [Recovered/Resolved]

NARRATIVE: CASE EVENT DATE: 20200902
